FAERS Safety Report 18507272 (Version 1)
Quarter: 2020Q4

REPORT INFORMATION
  Report Type: Spontaneous
  Country: DE (occurrence: DE)
  Receive Date: 20201116
  Receipt Date: 20201116
  Transmission Date: 20210114
  Serious: Yes (Life-Threatening, Hospitalization)
  Sender: FDA-Public Use
  Company Number: DE-MYLANLABS-2020M1094923

PATIENT
  Age: 81 Year
  Sex: Male
  Weight: 93 kg

DRUGS (11)
  1. MARCUMAR [Interacting]
     Active Substance: PHENPROCOUMON
     Indication: ANTICOAGULANT THERAPY
     Dosage: 3 MILLIGRAM, QD
     Route: 065
  2. METOPROLOL. [Suspect]
     Active Substance: METOPROLOL
     Indication: HYPERTENSION
     Dosage: 47.5 MILLIGRAM, QD
     Route: 065
  3. METFORMIN [Suspect]
     Active Substance: METFORMIN HYDROCHLORIDE
     Indication: DIABETES MELLITUS
     Dosage: 500 MILLIGRAM, BID
     Route: 065
  4. PREDNISOLONE. [Concomitant]
     Active Substance: PREDNISOLONE
     Indication: PRODUCT USED FOR UNKNOWN INDICATION
     Dosage: 250 MILLIGRAM, QD
     Route: 042
  5. ALLOPURINOL. [Interacting]
     Active Substance: ALLOPURINOL
     Indication: HYPERURICAEMIA
     Dosage: UNK
     Route: 065
  6. RAMIPRIL. [Suspect]
     Active Substance: RAMIPRIL
     Indication: HYPERTENSION
     Dosage: 2.5 MILLIGRAM, QD
     Route: 065
  7. STEROFUNDIN [Concomitant]
     Active Substance: CALCIUM CHLORIDE\MAGNESIUM CHLORIDE\POTASSIUM CHLORIDE\SODIUM ACETATE\SODIUM CHLORIDE
     Indication: PRODUCT USED FOR UNKNOWN INDICATION
     Dosage: UNK
     Route: 042
  8. AMPICILLIN/SULBACTAM ACTAVIS [Suspect]
     Active Substance: AMPICILLIN SODIUM\SULBACTAM SODIUM
     Indication: ANTIBIOTIC THERAPY
     Dosage: THREE TIMES A DAY
     Route: 042
  9. ENOXAPARIN [Concomitant]
     Active Substance: ENOXAPARIN
     Indication: ANTICOAGULANT THERAPY
     Dosage: 70 MILLIGRAM
     Route: 058
  10. TAMSULOSIN [Suspect]
     Active Substance: TAMSULOSIN
     Indication: BENIGN PROSTATIC HYPERPLASIA
     Dosage: 0.4 MILLIGRAM, QD
     Route: 065
  11. TENSOFLUX [Suspect]
     Active Substance: AMILORIDE\BENDROFLUMETHIAZIDE
     Indication: DIURETIC THERAPY
     Dosage: UNK
     Route: 065

REACTIONS (2)
  - SJS-TEN overlap [Recovered/Resolved]
  - Drug interaction [Recovered/Resolved]
